FAERS Safety Report 18961299 (Version 1)
Quarter: 2021Q1

REPORT INFORMATION
  Report Type: Spontaneous
  Country: CA (occurrence: CA)
  Receive Date: 20210303
  Receipt Date: 20210303
  Transmission Date: 20210420
  Serious: Yes (Other)
  Sender: FDA-Public Use
  Company Number: CA-BAXTER-2021BAX003642

PATIENT
  Age: 5 Year
  Sex: Female

DRUGS (1)
  1. VANCOMYCIN INJECTION USP IN 5% DEXTROSE [Suspect]
     Active Substance: VANCOMYCIN
     Indication: STAPHYLOCOCCAL BACTERAEMIA
     Route: 042

REACTIONS (1)
  - Linear IgA disease [Recovered/Resolved]
